FAERS Safety Report 16327507 (Version 1)
Quarter: 2019Q2

REPORT INFORMATION
  Report Type: Spontaneous
  Country: US (occurrence: US)
  Receive Date: 20190517
  Receipt Date: 20190517
  Transmission Date: 20190711
  Serious: Yes (Death, Hospitalization, Other)
  Sender: FDA-Public Use
  Company Number: US-IMPAX LABORATORIES, LLC-2019-IPXL-00962

PATIENT
  Age: 76 Year
  Sex: Male

DRUGS (2)
  1. RYTARY [Suspect]
     Active Substance: CARBIDOPA\LEVODOPA
     Indication: PARKINSON^S DISEASE
     Dosage: 7 DOSAGE FORM, DAILY (61.25-245MG, 3 IN THE MORNING, 2 IN THE AFTERNOONE, AND 2 AT NIGHT)
     Route: 048
  2. RYTARY [Suspect]
     Active Substance: CARBIDOPA\LEVODOPA
     Dosage: 48.75-195MG, 2 DOSAGE FORM, TID
     Route: 048

REACTIONS (2)
  - Cerebrovascular accident [Unknown]
  - Adverse event [Fatal]

NARRATIVE: CASE EVENT DATE: 20190315
